FAERS Safety Report 4937103-9 (Version None)
Quarter: 2006Q1

REPORT INFORMATION
  Report Type: 
  Country: None (occurrence: None)
  Receive Date: 20060307
  Receipt Date: 20060307
  Transmission Date: 20060701
  Serious: Yes (Life-Threatening, Hospitalization)
  Sender: FDA-Public Use
  Company Number: None

PATIENT
  Age: 60 Year
  Weight: 63.05 kg

DRUGS (16)
  1. FUROSEMIDE [Suspect]
     Indication: HYPERTENSION
     Dosage: 40MG PO QD   (CHRONIC)
     Route: 048
  2. SPIRONOLACTONE [Suspect]
     Indication: HYPERTENSION
     Dosage: 25 MG PO BID  (CHRONIC)
     Route: 048
  3. ASPIRIN [Concomitant]
  4. ACETIC ACID EARDROPS [Concomitant]
  5. MULTI-VITAMIN [Concomitant]
  6. MOM [Concomitant]
  7. TYLENOL (CAPLET) [Concomitant]
  8. CIPRO [Concomitant]
  9. MIRALAX [Concomitant]
  10. DARVOCET [Concomitant]
  11. SENOKOT [Concomitant]
  12. FOLIC ACID [Concomitant]
  13. HUMULIN 70/30 [Concomitant]
  14. BACTRIM DS [Concomitant]
  15. DILANTIN [Concomitant]
  16. BISACODYL [Concomitant]

REACTIONS (6)
  - AZOTAEMIA [None]
  - HYPONATRAEMIA [None]
  - HYPOVOLAEMIA [None]
  - LETHARGY [None]
  - ORAL INTAKE REDUCED [None]
  - RENAL FAILURE ACUTE [None]
